FAERS Safety Report 4973594-5 (Version None)
Quarter: 2006Q2

REPORT INFORMATION
  Report Type: 
  Country: None (occurrence: None)
  Receive Date: 20060414
  Receipt Date: 20060406
  Transmission Date: 20061013
  Serious: Yes (Other)
  Sender: FDA-Public Use
  Company Number: PT-ABBOTT-06P-130-0330157-00

PATIENT
  Age: 11 Year
  Sex: Male

DRUGS (1)
  1. KLACID OD [Suspect]
     Indication: DRUG USE FOR UNKNOWN INDICATION
     Route: 048

REACTIONS (1)
  - APNOEA [None]
